FAERS Safety Report 12346697 (Version 1)
Quarter: 2016Q2

REPORT INFORMATION
  Report Type: Not Available
  Country: DK (occurrence: DK)
  Receive Date: 20160509
  Receipt Date: 20160509
  Transmission Date: 20160815
  Serious: Yes (Hospitalization)
  Sender: FDA-Public Use
  Company Number: DK-BEH-2016062122

PATIENT
  Age: 69 Year
  Sex: Male
  Weight: 72 kg

DRUGS (1)
  1. PRIVIGEN [Suspect]
     Active Substance: HUMAN IMMUNOGLOBULIN G
     Indication: GUILLAIN-BARRE SYNDROME
     Dosage: DOSE: 30 MG /  TOTAL OF  150 G  DIVIDED OVER 5 DAYS AS  INFUSION.
     Route: 042
     Dates: start: 20160225, end: 20160301

REACTIONS (3)
  - Thrombolysis [Unknown]
  - Thrombectomy [Unknown]
  - Cerebrovascular accident [Not Recovered/Not Resolved]

NARRATIVE: CASE EVENT DATE: 20160301
